FAERS Safety Report 6223531-0 (Version None)
Quarter: 2009Q2

REPORT INFORMATION
  Report Type: 
  Country: None (occurrence: None)
  Receive Date: 20090610
  Receipt Date: 20090601
  Transmission Date: 20091009
  Serious: Yes (Hospitalization)
  Sender: FDA-Public Use
  Company Number: SPV1-2009-01108

PATIENT
  Age: 38 Year
  Sex: Male
  Weight: 73.5 kg

DRUGS (4)
  1. VYVANSE [Suspect]
     Indication: ATTENTION DEFICIT/HYPERACTIVITY DISORDER
     Dosage: 30 MG, 1X/DAY:QD, ORAL; 50 MG, 1X/DAY:QD, ORAL
     Route: 048
     Dates: start: 20080311, end: 20080514
  2. VYVANSE [Suspect]
     Indication: ATTENTION DEFICIT/HYPERACTIVITY DISORDER
     Dosage: 30 MG, 1X/DAY:QD, ORAL; 50 MG, 1X/DAY:QD, ORAL
     Route: 048
     Dates: start: 20080515, end: 20090529
  3. IMITREX [Suspect]
     Indication: MIGRAINE
     Dosage: ORAL
     Route: 048
     Dates: start: 20090401, end: 20090529
  4. SYNTHROID [Concomitant]

REACTIONS (5)
  - CEREBELLAR HAEMORRHAGE [None]
  - CEREBRAL HAEMORRHAGE [None]
  - CEREBROVASCULAR ACCIDENT [None]
  - CEREBROVASCULAR SPASM [None]
  - MIGRAINE [None]
